FAERS Safety Report 8886665 (Version 1)
Quarter: 2012Q4

REPORT INFORMATION
  Report Type: 
  Country: SE (occurrence: SE)
  Receive Date: 20121105
  Receipt Date: 20121105
  Transmission Date: 20130627
  Serious: Yes (Other)
  Sender: FDA-Public Use
  Company Number: PHHY2012SE099460

PATIENT
  Sex: Female

DRUGS (1)
  1. SANDOSTATIN LAR [Suspect]
     Dosage: UNK
     Dates: start: 2005

REACTIONS (10)
  - Ear neoplasm [Unknown]
  - Deafness [Unknown]
  - Cachexia [Unknown]
  - Flushing [Unknown]
  - Cardiac valve disease [Unknown]
  - Decreased appetite [Unknown]
  - Dizziness [Unknown]
  - Diarrhoea [Unknown]
  - Flatulence [Unknown]
  - Dyspnoea [Unknown]
